FAERS Safety Report 25347109 (Version 1)
Quarter: 2025Q2

REPORT INFORMATION
  Report Type: Spontaneous
  Country: CN (occurrence: CN)
  Receive Date: 20250522
  Receipt Date: 20250522
  Transmission Date: 20250717
  Serious: Yes (Life-Threatening, Hospitalization, Other)
  Sender: PFIZER
  Company Number: CN-PFIZER INC-PV202500060043

PATIENT
  Age: 62 Year
  Sex: Female
  Weight: 54 kg

DRUGS (2)
  1. EPIRUBICIN [Suspect]
     Active Substance: EPIRUBICIN
     Indication: Breast cancer female
     Dosage: 130 MG, 1X/DAY (D1)
     Route: 041
     Dates: start: 20250427, end: 20250427
  2. CYCLOPHOSPHAMIDE [Suspect]
     Active Substance: CYCLOPHOSPHAMIDE
     Indication: Breast cancer female
     Dosage: 900 MG, 1X/DAY (D1)
     Route: 041
     Dates: start: 20250427, end: 20250427

REACTIONS (16)
  - Granulocyte count decreased [Recovering/Resolving]
  - Blood potassium decreased [Recovering/Resolving]
  - White blood cell count decreased [Recovered/Resolved]
  - Platelet count decreased [Recovering/Resolving]
  - Pyrexia [Recovered/Resolved]
  - Asthenia [Unknown]
  - Cough [Unknown]
  - Chest discomfort [Unknown]
  - C-reactive protein increased [Recovering/Resolving]
  - Procalcitonin increased [Unknown]
  - Interleukin level increased [Unknown]
  - Haemoglobin decreased [Unknown]
  - Hypophagia [Unknown]
  - Aspartate aminotransferase increased [Unknown]
  - Blood albumin decreased [Unknown]
  - Blood magnesium decreased [Unknown]

NARRATIVE: CASE EVENT DATE: 20250501
